FAERS Safety Report 9554086 (Version 1)
Quarter: 2013Q3

REPORT INFORMATION
  Report Type: Spontaneous
  Country: US (occurrence: None)
  Receive Date: 20130815
  Receipt Date: 20130815
  Transmission Date: 20140515
  Serious: Yes (Hospitalization, Other)
  Sender: FDA-Public Use
  Company Number: ADR-2012-01338

PATIENT
  Sex: Female

DRUGS (2)
  1. BACLOFEN INTRATHECAL (BACLOFEN INJECTION) 1000 MCG/ML [Suspect]
     Indication: MUSCLE SPASTICITY
     Dosage: 120MCG/DAY
  2. BACLOFEN INTRATHECAL (BACLOFEN INJECTION) 1000 MCG/ML [Suspect]
     Indication: CEREBRAL PALSY
     Dosage: 120MCG/DAY

REACTIONS (1)
  - Hypertonia [None]
